FAERS Safety Report 9982209 (Version 1)
Quarter: 2014Q1

REPORT INFORMATION
  Report Type: Spontaneous
  Country: US (occurrence: None)
  Receive Date: 20140306
  Receipt Date: 20140306
  Transmission Date: 20141002
  Serious: Yes (Hospitalization)
  Sender: FDA-Public Use
  Company Number: None

PATIENT
  Age: 45 Year
  Sex: Female
  Weight: 93 kg

DRUGS (3)
  1. CYCLOPHOSPHAMIDE [Suspect]
     Dates: end: 20111130
  2. FLUDARABINE PHOSPHATE [Suspect]
     Dates: end: 20111130
  3. RITUXIMAB (MOAB C2B8 ANTI CD20, CHIMERIC) [Suspect]
     Dates: end: 20111128

REACTIONS (1)
  - Acute myeloid leukaemia [None]
